FAERS Safety Report 5955982-3 (Version None)
Quarter: 2008Q4

REPORT INFORMATION
  Report Type: 
  Country: None (occurrence: None)
  Receive Date: 20081112
  Receipt Date: 20081103
  Transmission Date: 20090506
  Serious: Yes (Hospitalization)
  Sender: FDA-Public Use
  Company Number: 231407K08USA

PATIENT
  Age: 60 Year
  Sex: Female
  Weight: 88 kg

DRUGS (5)
  1. REBIF [Suspect]
     Indication: MULTIPLE SCLEROSIS
     Dosage: 44 MCG, 3 IN 1 WEEKS, SUBCUTANEOUS
     Route: 058
     Dates: start: 20061030
  2. AVALIDE (KARVEA HCT) [Concomitant]
  3. FOSAMAX [Concomitant]
  4. VITAMIN D [Concomitant]
  5. IRON (IRON) [Concomitant]

REACTIONS (7)
  - ABASIA [None]
  - ANAEMIA [None]
  - BLOOD IRON DECREASED [None]
  - KIDNEY INFECTION [None]
  - MULTIPLE SCLEROSIS RELAPSE [None]
  - SKIN EXFOLIATION [None]
  - VITAMIN D DECREASED [None]
